FAERS Safety Report 9255004 (Version 1)
Quarter: 2013Q2

REPORT INFORMATION
  Report Type: Spontaneous
  Country: IT (occurrence: None)
  Receive Date: 20130422
  Receipt Date: 20130422
  Transmission Date: 20140414
  Serious: Yes (Hospitalization)
  Sender: FDA-Public Use
  Company Number: AUR-APL-2013-03176

PATIENT
  Sex: Male

DRUGS (3)
  1. AMOXICILLIN (AMOXICILLIN) [Suspect]
     Indication: PRODUCT USED FOR UNKNOWN INDICATION
  2. CLARITHROMYCIN (CLARITHROMYCIN) [Suspect]
  3. CLAVULANIC ACID [Suspect]

REACTIONS (2)
  - Rash [None]
  - Rash macular [None]
